FAERS Safety Report 5390031-X (Version None)
Quarter: 2007Q3

REPORT INFORMATION
  Report Type: 
  Country: None (occurrence: None)
  Receive Date: 20070713
  Receipt Date: 20070711
  Transmission Date: 20080115
  Serious: Yes (Life-Threatening, Hospitalization, Disabling)
  Sender: FDA-Public Use
  Company Number: 2007-02326

PATIENT
  Sex: Female
  Weight: 60 kg

DRUGS (1)
  1. VELCADE [Suspect]
     Indication: MULTIPLE MYELOMA
     Dates: end: 20070629

REACTIONS (4)
  - DISEASE PROGRESSION [None]
  - HYPERVISCOSITY SYNDROME [None]
  - HYPONATRAEMIA [None]
  - MENTAL STATUS CHANGES [None]
